FAERS Safety Report 19643079 (Version 1)
Quarter: 2021Q3

REPORT INFORMATION
  Report Type: Spontaneous
  Country: US (occurrence: US)
  Receive Date: 20210730
  Receipt Date: 20210730
  Transmission Date: 20211014
  Serious: No
  Sender: FDA-Public Use
  Company Number: US-SA-2021SA251814

PATIENT
  Sex: Female
  Weight: 64 kg

DRUGS (5)
  1. ELIQUIS [Suspect]
     Active Substance: APIXABAN
     Dosage: 5 MG, Q12H
  2. BABY ASPIRIN [Concomitant]
     Active Substance: ASPIRIN
     Dosage: UNK UNK, QD
  3. ZETIA [Concomitant]
     Active Substance: EZETIMIBE
     Dosage: UNK UNK, QD
  4. PLAVIX [Suspect]
     Active Substance: CLOPIDOGREL BISULFATE
     Dosage: UNK
     Route: 048
  5. NADOLOL. [Concomitant]
     Active Substance: NADOLOL
     Dosage: UNK

REACTIONS (2)
  - Product administration error [Unknown]
  - Blood cholesterol increased [Unknown]
